FAERS Safety Report 6247951-3 (Version None)
Quarter: 2009Q2

REPORT INFORMATION
  Report Type: 
  Country: None (occurrence: None)
  Receive Date: 20090626
  Receipt Date: 20090617
  Transmission Date: 20091009
  Serious: Yes (Hospitalization)
  Sender: FDA-Public Use
  Company Number: US-B.I. PHARMACEUTICALS,INC./RIDGEFIELD-2009-BP-07471BP

PATIENT
  Sex: Female

DRUGS (12)
  1. MIRAPEX [Suspect]
     Indication: MAJOR DEPRESSION
     Dosage: 5 MG
     Route: 048
     Dates: start: 20080101
  2. HYDROCHLOROTHIAZIDE [Concomitant]
     Indication: NEPHROLITHIASIS
  3. PARNATE [Concomitant]
     Indication: ANTIDEPRESSANT THERAPY
     Dosage: 90 MG
  4. ALLEGRA [Concomitant]
     Indication: HYPERSENSITIVITY
  5. ABILIFY [Concomitant]
     Indication: DEPRESSION
  6. SYNTHROID [Concomitant]
     Indication: HYPOTHYROIDISM
  7. LUNESTA [Concomitant]
     Indication: SLEEP DISORDER
  8. ZANAFLEX [Concomitant]
     Indication: SLEEP DISORDER
  9. ARTHROTEC [Concomitant]
     Indication: OSTEOARTHRITIS
  10. PRILOSEC [Concomitant]
     Indication: GASTRITIS
  11. SUCRALFATE [Concomitant]
     Indication: GASTRITIS
  12. PROVIGIL [Concomitant]
     Indication: NARCOLEPSY

REACTIONS (7)
  - BLOOD PRESSURE INCREASED [None]
  - DEHYDRATION [None]
  - HEART RATE DECREASED [None]
  - HYPOTENSION [None]
  - LOSS OF CONSCIOUSNESS [None]
  - OVERDOSE [None]
  - ROAD TRAFFIC ACCIDENT [None]
